FAERS Safety Report 20238160 (Version 1)
Quarter: 2021Q4

REPORT INFORMATION
  Report Type: Spontaneous
  Country: KR (occurrence: KR)
  Receive Date: 20211228
  Receipt Date: 20211228
  Transmission Date: 20220303
  Serious: Yes (Hospitalization)
  Sender: FDA-Public Use
  Company Number: KR-ELI_LILLY_AND_COMPANY-KR202112011150

PATIENT
  Age: 74 Year
  Sex: Male

DRUGS (1)
  1. HUMALOG [Suspect]
     Active Substance: INSULIN LISPRO
     Indication: Diabetes mellitus
     Dosage: 9 INTERNATIONAL UNIT, DAILY
     Route: 058
     Dates: start: 201709

REACTIONS (6)
  - General physical health deterioration [Not Recovered/Not Resolved]
  - Blood pressure increased [Unknown]
  - Hyperglycaemia [Recovered/Resolved]
  - Nasopharyngitis [Unknown]
  - Chest pain [Recovered/Resolved]
  - Hypertension [Unknown]

NARRATIVE: CASE EVENT DATE: 20171201
